FAERS Safety Report 8337509-4 (Version None)
Quarter: 2012Q2

REPORT INFORMATION
  Report Type: 
  Country: None (occurrence: None)
  Receive Date: 20120504
  Receipt Date: 20120420
  Transmission Date: 20120825
  Serious: No
  Sender: FDA-Public Use
  Company Number: NL-ROCHE-1054211

PATIENT
  Sex: Female

DRUGS (2)
  1. ISOTRETINOIN [Suspect]
     Indication: ACNE
     Route: 048
     Dates: start: 20110618, end: 20120215
  2. NUVARING [Concomitant]
     Indication: CONTRACEPTION

REACTIONS (1)
  - UNINTENDED PREGNANCY [None]
